FAERS Safety Report 18526740 (Version 2)
Quarter: 2020Q4

REPORT INFORMATION
  Report Type: Report from Study
  Country: None (occurrence: DE)
  Receive Date: 20201120
  Receipt Date: 20201125
  Transmission Date: 20210114
  Serious: Yes (Hospitalization)
  Sender: FDA-Public Use
  Company Number: DE-ABBVIE-20K-062-3653278-00

PATIENT
  Sex: Female

DRUGS (3)
  1. HUMIRA [Suspect]
     Active Substance: ADALIMUMAB
     Route: 058
     Dates: end: 2020
  2. HUMIRA [Suspect]
     Active Substance: ADALIMUMAB
     Indication: PRODUCT USED FOR UNKNOWN INDICATION
     Route: 058
  3. RINVOQ [Concomitant]
     Active Substance: UPADACITINIB
     Indication: RHEUMATOID ARTHRITIS
     Dosage: PRO-LONGED RELEASE TABLET
     Route: 048
     Dates: start: 20201022

REACTIONS (10)
  - Arthralgia [Unknown]
  - Neck pain [Unknown]
  - Pain in extremity [Recovering/Resolving]
  - Arthralgia [Recovering/Resolving]
  - Rheumatic disorder [Recovered/Resolved]
  - Drug ineffective [Unknown]
  - Spinal pain [Recovering/Resolving]
  - Bone pain [Recovering/Resolving]
  - Pain in extremity [Unknown]
  - Osteoporosis [Unknown]

NARRATIVE: CASE EVENT DATE: 2004
